FAERS Safety Report 18455080 (Version 2)
Quarter: 2020Q4

REPORT INFORMATION
  Report Type: Spontaneous
  Country: CO (occurrence: CO)
  Receive Date: 20201102
  Receipt Date: 20201109
  Transmission Date: 20210114
  Serious: Yes (Other)
  Sender: FDA-Public Use
  Company Number: CO-PFIZER INC-2018058767

PATIENT
  Age: 54 Year
  Sex: Female

DRUGS (15)
  1. PREDNISOLONE. [Concomitant]
     Active Substance: PREDNISOLONE
     Dosage: UNK
     Dates: start: 2015
  2. XELJANZ [Suspect]
     Active Substance: TOFACITINIB CITRATE
     Indication: RHEUMATOID ARTHRITIS
     Dosage: 5 MG, 2X/DAY
     Route: 048
     Dates: start: 2017
  3. XARELTO [Concomitant]
     Active Substance: RIVAROXABAN
     Dosage: 20 MG
     Dates: start: 2014
  4. DOLEX [Concomitant]
     Active Substance: IBUPROFEN
     Indication: FIBROMYALGIA
     Dosage: 665 MG, 3X/DAY (EVERY 8 HOURS)
     Dates: start: 2016
  5. LEVOTHYROXIN [Concomitant]
     Active Substance: LEVOTHYROXINE
     Dosage: UNK
     Dates: start: 2016
  6. XELJANZ [Suspect]
     Active Substance: TOFACITINIB CITRATE
     Dosage: 5 MG
     Route: 048
     Dates: end: 20201027
  7. PREGABALIN. [Concomitant]
     Active Substance: PREGABALIN
     Indication: FIBROMYALGIA
     Dosage: 75 MG, 2X/DAY (EVERY 12 HOURS)
     Dates: start: 2014
  8. ACRYLARM [Concomitant]
     Dosage: UNK
  9. FOLIC ACID. [Concomitant]
     Active Substance: FOLIC ACID
     Dosage: UNK
     Dates: start: 2015
  10. XELJANZ [Suspect]
     Active Substance: TOFACITINIB CITRATE
     Indication: SUPRAVENTRICULAR TACHYCARDIA
     Dosage: 5 MG, 2X/DAY
     Route: 048
     Dates: start: 201612
  11. METHOTREXATE. [Concomitant]
     Active Substance: METHOTREXATE
     Dosage: UNK
     Dates: start: 2015
  12. DOLEX [Concomitant]
     Active Substance: IBUPROFEN
     Indication: PHANTOM LIMB SYNDROME
  13. PREGABALIN. [Concomitant]
     Active Substance: PREGABALIN
     Indication: LIMB AMPUTATION
  14. ESOMEPRAZOL +PHARMA [Concomitant]
     Dosage: UNK
  15. CALCIUM CARBONATE AND VITAMIN D [Concomitant]
     Active Substance: CALCIUM CARBONATE\VITAMIN D
     Dosage: UNK
     Dates: start: 2015

REACTIONS (12)
  - Varicose ulceration [Not Recovered/Not Resolved]
  - Iron deficiency [Unknown]
  - Skin lesion [Recovered/Resolved]
  - Tongue biting [Recovered/Resolved]
  - Traumatic ulcer [Not Recovered/Not Resolved]
  - Pain [Unknown]
  - Venous occlusion [Unknown]
  - Coagulopathy [Recovered/Resolved]
  - Anogenital warts [Recovered/Resolved]
  - Impaired healing [Recovered/Resolved]
  - Tinnitus [Recovered/Resolved]
  - Skin ulcer [Not Recovered/Not Resolved]

NARRATIVE: CASE EVENT DATE: 20170124
